FAERS Safety Report 5137481-4 (Version None)
Quarter: 2006Q4

REPORT INFORMATION
  Report Type: 
  Country: None (occurrence: None)
  Receive Date: 20061030
  Receipt Date: 20051109
  Transmission Date: 20070319
  Serious: No
  Sender: FDA-Public Use
  Company Number: US-GLAXOSMITHKLINE-A0581600A

PATIENT
  Sex: Male

DRUGS (2)
  1. ADVAIR HFA [Suspect]
     Indication: LUNG INFECTION
     Dosage: 250MG FOUR TIMES PER DAY
     Route: 055
     Dates: start: 20051102, end: 20051107
  2. INDERAL [Concomitant]

REACTIONS (4)
  - DYSPHONIA [None]
  - PHARYNGOLARYNGEAL PAIN [None]
  - POSTNASAL DRIP [None]
  - PYREXIA [None]
